FAERS Safety Report 17871211 (Version 1)
Quarter: 2020Q2

REPORT INFORMATION
  Report Type: Spontaneous
  Country: JP (occurrence: JP)
  Receive Date: 20200608
  Receipt Date: 20200608
  Transmission Date: 20200714
  Serious: Yes (Death, Hospitalization, Other)
  Sender: FDA-Public Use
  Company Number: JP-BAYER-2020-031369

PATIENT
  Age: 74 Year
  Sex: Male

DRUGS (3)
  1. PLATELETS [Concomitant]
     Active Substance: HUMAN PLATELET, ALLOGENIC
     Dosage: UNK
     Dates: start: 20200303
  2. XOFIGO [Suspect]
     Active Substance: RADIUM RA-223 DICHLORIDE
     Dosage: UNK
     Route: 042
     Dates: start: 20200106
  3. PLATELETS [Concomitant]
     Active Substance: HUMAN PLATELET, ALLOGENIC
     Dosage: UNK
     Dates: start: 20200129

REACTIONS (9)
  - Off label use [None]
  - Product use in unapproved indication [None]
  - Metastases to bone [None]
  - Haemoglobin decreased [None]
  - Metastases to liver [None]
  - Death [Fatal]
  - Bone marrow failure [None]
  - Disease progression [None]
  - General physical health deterioration [None]
